FAERS Safety Report 9499026 (Version 2)
Quarter: 2013Q3

REPORT INFORMATION
  Report Type: Spontaneous
  Country: US (occurrence: US)
  Receive Date: 20130904
  Receipt Date: 20130904
  Transmission Date: 20140515
  Serious: Yes (Hospitalization, Other)
  Sender: FDA-Public Use
  Company Number: US-009507513-1202USA04364

PATIENT
  Sex: Female

DRUGS (5)
  1. FOSAMAX [Suspect]
     Indication: OSTEOPENIA
     Dosage: 70 MG, UNK
     Route: 048
     Dates: start: 2000, end: 2008
  2. FOSAMAX [Suspect]
     Indication: OSTEOARTHRITIS
  3. FOSAMAX PLUS D [Suspect]
     Indication: OSTEOPENIA
     Dosage: 70 MG, UNK
     Route: 048
     Dates: start: 2008, end: 201002
  4. VITAMIN D (UNSPECIFIED) [Concomitant]
     Dosage: 600 MG, QD
     Dates: start: 2003
  5. CALCIUM (UNSPECIFIED) [Concomitant]
     Dosage: 1200 MG, QD
     Dates: start: 2003

REACTIONS (5)
  - Femur fracture [Unknown]
  - Open reduction of fracture [Unknown]
  - Off label use [Unknown]
  - Depression [Not Recovered/Not Resolved]
  - Blood cholesterol increased [Not Recovered/Not Resolved]
